FAERS Safety Report 22046395 (Version 1)
Quarter: 2023Q1

REPORT INFORMATION
  Report Type: Spontaneous
  Country: US (occurrence: US)
  Receive Date: 20230228
  Receipt Date: 20230228
  Transmission Date: 20230417
  Serious: No
  Sender: FDA-Public Use
  Company Number: US-BAUSCH-BL-2023-003381

PATIENT
  Age: 22 Year
  Sex: Female

DRUGS (3)
  1. RETIN-A [Suspect]
     Active Substance: TRETINOIN
     Indication: Acne
     Route: 061
     Dates: start: 2020
  2. RETIN-A [Suspect]
     Active Substance: TRETINOIN
     Route: 061
     Dates: start: 2022
  3. NIACINAMIDE SERUM [Concomitant]
     Indication: Product used for unknown indication

REACTIONS (2)
  - Acne [Unknown]
  - Therapeutic product effect decreased [Unknown]
